FAERS Safety Report 11245552 (Version 12)
Quarter: 2020Q2

REPORT INFORMATION
  Report Type: Spontaneous
  Country: US (occurrence: US)
  Receive Date: 20150707
  Receipt Date: 20200623
  Transmission Date: 20200713
  Serious: Yes (Other)
  Sender: FDA-Public Use
  Company Number: US-PFIZER INC-2015164449

PATIENT
  Age: 60 Year
  Sex: Male
  Weight: 92 kg

DRUGS (26)
  1. CYMBALTA [Concomitant]
     Active Substance: DULOXETINE HYDROCHLORIDE
     Indication: POST LAMINECTOMY SYNDROME
     Dosage: 60 MG, 1X/DAY (AM)
     Route: 048
     Dates: start: 20150415
  2. ADVAIR HFA [Concomitant]
     Active Substance: FLUTICASONE PROPIONATE\SALMETEROL XINAFOATE
     Dosage: UNK, 2X/DAY (FLUTICASONE PROPIONATE:250, SALMETEROL XINAFOATE: 50) (AM+PM)
  3. LYRICA [Suspect]
     Active Substance: PREGABALIN
     Indication: NEURALGIA
     Dosage: 150 MG, 4X/DAY
     Route: 048
     Dates: start: 20150211
  4. POTASSIUM CHLORIDE. [Concomitant]
     Active Substance: POTASSIUM CHLORIDE
     Dosage: 10 MEQ, 1X/DAY (AM)
     Route: 048
  5. CELLCEPT [Concomitant]
     Active Substance: MYCOPHENOLATE MOFETIL\MYCOPHENOLATE MOFETIL HYDROCHLORIDE
     Dosage: 1000 MG, 2X/DAY (AM+ PM)
  6. STOOL SOFTENER (DOCUSATE) [Concomitant]
     Active Substance: DOCUSATE
     Dosage: UNK
  7. TRAMADOL HCL [Concomitant]
     Active Substance: TRAMADOL HYDROCHLORIDE
     Indication: POST LAMINECTOMY SYNDROME
     Dosage: 100 MG, 3X/DAY (50 MG, 2 TABLET)
     Route: 048
     Dates: start: 20150415
  8. LIDODERM [Concomitant]
     Active Substance: LIDOCAINE
     Indication: POST LAMINECTOMY SYNDROME
     Dosage: 1 DF, 2X/DAY (1 PATCH, Q12 HOURS, OFF 12 HOURS)
     Route: 061
     Dates: start: 20141217
  9. VESICARE [Concomitant]
     Active Substance: SOLIFENACIN SUCCINATE
     Dosage: 10 MG, 1X/DAY (AM)
     Route: 048
  10. OMEPRAZOLE. [Concomitant]
     Active Substance: OMEPRAZOLE
     Dosage: 20 MG, 1X/DAY
     Route: 048
  11. RANEXA [Concomitant]
     Active Substance: RANOLAZINE
     Dosage: 1000 MG, 2X/DAY (AM+PM)
     Route: 048
  12. ISOSORBIDE DINITRATE. [Concomitant]
     Active Substance: ISOSORBIDE DINITRATE
     Dosage: 30 MG, UNK
     Route: 048
  13. ATORVASTATIN [Concomitant]
     Active Substance: ATORVASTATIN
     Dosage: 40 MG, 1X/DAY (PM)
  14. LYRICA [Suspect]
     Active Substance: PREGABALIN
     Indication: POST LAMINECTOMY SYNDROME
     Dosage: 200 MG, 2X/DAY
     Route: 048
     Dates: start: 20140827
  15. TRAMADOL HCL [Concomitant]
     Active Substance: TRAMADOL HYDROCHLORIDE
     Indication: NEURALGIA
     Dosage: 100 MG, 2X/DAY
  16. FUROSEMIDE. [Concomitant]
     Active Substance: FUROSEMIDE
     Dosage: 20 MG, AS NEEDED
     Route: 048
  17. BACLOFEN. [Concomitant]
     Active Substance: BACLOFEN
     Indication: POST LAMINECTOMY SYNDROME
     Dosage: 20 MG, 3X/DAY
     Route: 048
     Dates: start: 20150415
  18. DULOXETINE HCL [Concomitant]
     Active Substance: DULOXETINE HYDROCHLORIDE
     Dosage: 60 MG, UNK
     Route: 048
  19. LYRICA [Suspect]
     Active Substance: PREGABALIN
     Indication: SPINAL OSTEOARTHRITIS
     Dosage: 150 MG, 4X/DAY (FOR 90 DAYS)
     Route: 048
  20. MYCOPHENOLATE MOFETIL. [Concomitant]
     Active Substance: MYCOPHENOLATE MOFETIL
     Dosage: 500 MG, UNK
     Route: 042
  21. PHENAZOPYRIDINE HCL [Concomitant]
     Active Substance: PHENAZOPYRIDINE HYDROCHLORIDE
     Dosage: 200 MG, UNK
     Route: 048
  22. AMLODIPINE BESYLATE-BENAZEPRIL HCL [Concomitant]
     Dosage: 10 MG+20 MG
     Route: 048
  23. CEPHALEXIN. [Concomitant]
     Active Substance: CEPHALEXIN
     Dosage: 250 MG, UNK
  24. ASA [Concomitant]
     Active Substance: ASPIRIN
     Dosage: 325 MG, 1X/DAY (PM)
  25. ATORVASTATIN CALCIUM. [Concomitant]
     Active Substance: ATORVASTATIN CALCIUM
     Dosage: 40 MG, UNK
     Route: 048
  26. ISOSORBIDE MONONITRATE. [Concomitant]
     Active Substance: ISOSORBIDE MONONITRATE
     Dosage: 90 MG, 1X/DAY

REACTIONS (19)
  - Sedation [Unknown]
  - Gait disturbance [Unknown]
  - Contusion [Unknown]
  - Hypokinesia [Unknown]
  - Meningitis [Unknown]
  - Fatigue [Unknown]
  - Nerve injury [Unknown]
  - Loss of personal independence in daily activities [Unknown]
  - Arthralgia [Unknown]
  - Hypoaesthesia [Unknown]
  - Abdominal discomfort [Unknown]
  - Dyspnoea [Unknown]
  - Constipation [Unknown]
  - Asthenia [Unknown]
  - Stenosis [Unknown]
  - Balance disorder [Unknown]
  - Pain [Unknown]
  - Headache [Unknown]
  - Urinary incontinence [Unknown]
